FAERS Safety Report 13962137 (Version 4)
Quarter: 2018Q4

REPORT INFORMATION
  Report Type: Report from Study
  Country: RU (occurrence: RU)
  Receive Date: 20170912
  Receipt Date: 20181116
  Transmission Date: 20190204
  Serious: Yes (Other)
  Sender: FDA-Public Use
  Company Number: RU-ARIAD-2017RU008836

PATIENT
  Age: 57 Year
  Sex: Female
  Weight: 69 kg

DRUGS (10)
  1. SIOFOR [Concomitant]
     Active Substance: METFORMIN HYDROCHLORIDE
     Indication: DIABETES MELLITUS
     Dosage: UNK
     Route: 048
     Dates: start: 20170524
  2. ALLOPURINOLUM [Concomitant]
     Indication: TUMOUR LYSIS SYNDROME
     Dosage: UNK
     Route: 048
     Dates: start: 20170801, end: 20170829
  3. DIABETON                           /00145301/ [Concomitant]
     Indication: DIABETES MELLITUS
     Dosage: UNK
     Route: 048
     Dates: start: 20170524
  4. CO DALNESSA [Concomitant]
     Indication: HYPERTENSION
     Dosage: UNK
     Route: 048
     Dates: start: 201402
  5. QUINAX [Concomitant]
     Indication: RETINOPATHY
     Dosage: UNK
     Route: 047
     Dates: start: 20170719
  6. ACETYLSALICYLIC ACID [Concomitant]
     Active Substance: ASPIRIN
     Indication: THROMBOCYTOSIS
     Dosage: UNK
     Route: 048
  7. PONATINIB [Suspect]
     Active Substance: PONATINIB
     Indication: CHRONIC MYELOID LEUKAEMIA
     Dosage: 45 MG, QD
     Route: 048
     Dates: start: 20170801, end: 20170828
  8. SYSTANE ULTRA [Concomitant]
     Active Substance: POLYETHYLENE GLYCOL 400\PROPYLENE GLYCOL
     Indication: DRY EYE
     Dosage: UNK
     Route: 047
     Dates: start: 20170719
  9. ATORVASTATINUM [Concomitant]
     Indication: BLOOD CHOLESTEROL INCREASED
     Dosage: UNK
     Route: 048
     Dates: start: 2013
  10. GALVUS [Concomitant]
     Active Substance: VILDAGLIPTIN
     Indication: DIABETES MELLITUS
     Dosage: UNK
     Route: 048

REACTIONS (1)
  - Coeliac artery stenosis [Not Recovered/Not Resolved]

NARRATIVE: CASE EVENT DATE: 20170823
